FAERS Safety Report 22170549 (Version 2)
Quarter: 2023Q2

REPORT INFORMATION
  Report Type: Spontaneous
  Country: IT (occurrence: IT)
  Receive Date: 20230404
  Receipt Date: 20230620
  Transmission Date: 20230722
  Serious: Yes (Hospitalization, Disabling, Other)
  Sender: FDA-Public Use
  Company Number: IT-HOSPIRA-207937

PATIENT
  Age: 45 Year
  Sex: Female

DRUGS (5)
  1. DOXORUBICIN [Suspect]
     Active Substance: DOXORUBICIN
     Indication: Breast cancer
     Dosage: UNK
     Route: 065
     Dates: end: 20051201
  2. LETROZOLE [Suspect]
     Active Substance: LETROZOLE
     Indication: Breast cancer
     Dosage: 2.5 MILLIGRAM
     Route: 065
     Dates: start: 20060101
  3. CLONAZEPAM [Suspect]
     Active Substance: CLONAZEPAM
     Indication: Breast cancer
     Dosage: UNK (6 COURSES OF STANDARD DOSE)
     Route: 065
     Dates: end: 20051201
  4. TRASTUZUMAB [Suspect]
     Active Substance: TRASTUZUMAB
     Indication: Breast cancer
     Dosage: 4 MILLIGRAM/KILOGRAM
     Route: 065
     Dates: start: 20060101, end: 20060401
  5. TRASTUZUMAB [Suspect]
     Active Substance: TRASTUZUMAB
     Dosage: 6 MILLIGRAM, FREQ; 1 WEEK, INTERVAL 3
     Route: 065
     Dates: start: 20060101, end: 20060401

REACTIONS (2)
  - Cardiac failure [Recovering/Resolving]
  - Cardiac ventricular thrombosis [Unknown]

NARRATIVE: CASE EVENT DATE: 20060101
